FAERS Safety Report 22230409 (Version 1)
Quarter: 2023Q2

REPORT INFORMATION
  Report Type: Spontaneous
  Country: NL (occurrence: NL)
  Receive Date: 20230419
  Receipt Date: 20230419
  Transmission Date: 20230721
  Serious: Yes (Other)
  Sender: FDA-Public Use
  Company Number: None

PATIENT
  Sex: Male
  Weight: 94 kg

DRUGS (1)
  1. TECFIDERA [Suspect]
     Active Substance: DIMETHYL FUMARATE
     Indication: Relapsing-remitting multiple sclerosis
     Dosage: 2X DAILY 1X
     Route: 050
     Dates: start: 20191014, end: 20200303

REACTIONS (2)
  - Seasonal allergy [Recovered/Resolved]
  - Condition aggravated [Recovered/Resolved]
